FAERS Safety Report 7541082-8 (Version None)
Quarter: 2011Q2

REPORT INFORMATION
  Report Type: 
  Country: None (occurrence: None)
  Receive Date: 20110610
  Receipt Date: 20110606
  Transmission Date: 20111010
  Serious: Yes (Disabling)
  Sender: FDA-Public Use
  Company Number: BR-ROCHE-781056

PATIENT
  Sex: Female

DRUGS (10)
  1. RITUXIMAB [Suspect]
     Indication: RHEUMATOID ARTHRITIS
     Dosage: DOSE: 100MG/10 ML
     Route: 065
     Dates: start: 20090401, end: 20090401
  2. FOLIC ACID [Concomitant]
  3. SCAFLAM [Concomitant]
  4. METHOTREXATE [Concomitant]
  5. OMEPRAZOLE [Concomitant]
     Dosage: ONE TABLET IN THE MORNING AND ONE TABLET IN THE NIGHT.
  6. ENALAPRIL MALEATE [Concomitant]
  7. ROXICAM [Concomitant]
  8. PREDNISONE [Concomitant]
  9. TOCILIZUMAB [Suspect]
     Indication: RHEUMATOID ARTHRITIS
     Route: 065
     Dates: start: 20110524
  10. PREDNISONE [Concomitant]
     Dosage: DOSE INCREASED

REACTIONS (5)
  - WEIGHT DECREASED [None]
  - ARTHRALGIA [None]
  - PAIN [None]
  - GAIT DISTURBANCE [None]
  - RHEUMATOID ARTHRITIS [None]
